FAERS Safety Report 7363364-5 (Version None)
Quarter: 2011Q1

REPORT INFORMATION
  Report Type: 
  Country: None (occurrence: None)
  Receive Date: 20110321
  Receipt Date: 20110311
  Transmission Date: 20110831
  Serious: Yes (Hospitalization, Other)
  Sender: FDA-Public Use
  Company Number: US-PFIZER INC-2007036555

PATIENT
  Sex: Male

DRUGS (1)
  1. NEURONTIN [Suspect]
     Indication: INTERVERTEBRAL DISC PROTRUSION
     Dosage: 300 MG, UNK
     Dates: start: 20000101

REACTIONS (8)
  - HYPERTENSION [None]
  - GASTRIC DISORDER [None]
  - DIZZINESS [None]
  - DRUG INEFFECTIVE FOR UNAPPROVED INDICATION [None]
  - CHEST PAIN [None]
  - SUICIDAL IDEATION [None]
  - SOMNOLENCE [None]
  - THINKING ABNORMAL [None]
